FAERS Safety Report 15451191 (Version 1)
Quarter: 2018Q3

REPORT INFORMATION
  Report Type: Spontaneous
  Country: US (occurrence: US)
  Receive Date: 20180927
  Receipt Date: 20180927
  Transmission Date: 20181010
  Serious: Yes (Other)
  Sender: FDA-Public Use
  Company Number: None

PATIENT
  Age: 46 Year
  Sex: Male
  Weight: 75.96 kg

DRUGS (4)
  1. ACTEMRA [Suspect]
     Active Substance: TOCILIZUMAB
     Indication: RENAL TRANSPLANT
     Dosage: ?          OTHER FREQUENCY:MONTHLY;?
     Route: 042
     Dates: start: 20180906, end: 20180906
  2. ACTEMRA [Suspect]
     Active Substance: TOCILIZUMAB
     Indication: IMMUNE TOLERANCE INDUCTION
     Dosage: ?          OTHER FREQUENCY:MONTHLY;?
     Route: 042
     Dates: start: 20180906, end: 20180906
  3. PRIVIGEN [Suspect]
     Active Substance: HUMAN IMMUNOGLOBULIN G
     Indication: TRANSPLANT
     Dosage: ?          OTHER FREQUENCY:EVERY 14?15 DAYS;?
     Route: 041
     Dates: start: 20180909, end: 20180909
  4. PRIVIGEN [Suspect]
     Active Substance: HUMAN IMMUNOGLOBULIN G
     Indication: IMMUNE TOLERANCE INDUCTION
     Dosage: ?          OTHER FREQUENCY:EVERY 14?15 DAYS;?
     Route: 041
     Dates: start: 20180909, end: 20180909

REACTIONS (1)
  - Urticaria [None]

NARRATIVE: CASE EVENT DATE: 20180906
